FAERS Safety Report 8823759 (Version 1)
Quarter: 2012Q4

REPORT INFORMATION
  Report Type: 
  Country: KR (occurrence: KR)
  Receive Date: 20121003
  Receipt Date: 20121003
  Transmission Date: 20130627
  Serious: Yes (Hospitalization, Other)
  Sender: FDA-Public Use
  Company Number: KR-ABBOTT-12P-090-0988813-00

PATIENT
  Age: 41 Year
  Sex: Female

DRUGS (3)
  1. CYCLOSPORINE [Suspect]
     Indication: PEMPHIGUS
  2. CYCLOSPORINE [Suspect]
  3. METHYLPREDNISOLON [Concomitant]
     Indication: PEMPHIGUS

REACTIONS (1)
  - Posterior reversible encephalopathy syndrome [Recovered/Resolved]
